FAERS Safety Report 6146013-3 (Version None)
Quarter: 2009Q2

REPORT INFORMATION
  Report Type: 
  Country: None (occurrence: None)
  Receive Date: 20090406
  Receipt Date: 20090406
  Transmission Date: 20091009
  Serious: No
  Sender: FDA-Public Use
  Company Number: None

PATIENT
  Age: 65 Year
  Sex: Female
  Weight: 83.0083 kg

DRUGS (1)
  1. RECLAST [Suspect]
     Indication: OSTEOPOROSIS
     Dosage: 5MG ONCE A YEAR IV
     Route: 042
     Dates: start: 20080906

REACTIONS (4)
  - DISORDER OF ORBIT [None]
  - MASS [None]
  - SCLERITIS [None]
  - VISUAL ACUITY REDUCED [None]
